FAERS Safety Report 18386060 (Version 1)
Quarter: 2020Q4

REPORT INFORMATION
  Report Type: Spontaneous
  Country: US (occurrence: US)
  Receive Date: 20201014
  Receipt Date: 20201014
  Transmission Date: 20210114
  Serious: Yes (Death)
  Sender: FDA-Public Use
  Company Number: None

PATIENT
  Age: 62 Year
  Sex: Male
  Weight: 44.91 kg

DRUGS (4)
  1. FULPHILA [Suspect]
     Active Substance: PEGFILGRASTIM-JMDB
     Indication: PANCREATIC CARCINOMA
     Dosage: ?          OTHER FREQUENCY:ON DAY 5 OF CYCLE;?
     Route: 058
     Dates: start: 20200822, end: 20201014
  2. OXALIPLATIN. [Concomitant]
     Active Substance: OXALIPLATIN
  3. FLUOROURACIL. [Concomitant]
     Active Substance: FLUOROURACIL
  4. LEUCOVORIN CALCIUM. [Concomitant]
     Active Substance: LEUCOVORIN CALCIUM

REACTIONS (1)
  - Death [None]

NARRATIVE: CASE EVENT DATE: 20201014
